FAERS Safety Report 16881366 (Version 1)
Quarter: 2019Q4

REPORT INFORMATION
  Report Type: Spontaneous
  Country: US (occurrence: US)
  Receive Date: 20190808
  Receipt Date: 20190808
  Transmission Date: 20200122
  Serious: No
  Sender: FDA-Public Use
  Company Number: None

PATIENT
  Age: 49 Year
  Sex: Female

DRUGS (1)
  1. COPAXONE [Suspect]
     Active Substance: GLATIRAMER ACETATE
     Dosage: ?          OTHER FREQUENCY:OTHER;?

REACTIONS (8)
  - Flushing [None]
  - Therapy cessation [None]
  - Insurance issue [None]
  - Infection [None]
  - Bacterial infection [None]
  - Feeling hot [None]
  - Injection site indentation [None]
  - Loss of consciousness [None]

NARRATIVE: CASE EVENT DATE: 20190808
